FAERS Safety Report 5618563-7 (Version None)
Quarter: 2008Q1

REPORT INFORMATION
  Report Type: 
  Country: None (occurrence: None)
  Receive Date: 20080207
  Receipt Date: 20080131
  Transmission Date: 20080703
  Serious: Yes (Hospitalization)
  Sender: FDA-Public Use
  Company Number: US-BAXTER-2008BH000968

PATIENT
  Age: 68 Year
  Sex: Male

DRUGS (20)
  1. DIANEAL [Suspect]
     Indication: PERITONEAL DIALYSIS
     Dosage: DOSE UNIT:UNKNOWN
     Route: 033
     Dates: start: 20080120
  2. DIANEAL [Suspect]
     Indication: PERITONEAL DIALYSIS
     Dosage: DOSE UNIT:UNKNOWN
     Route: 033
     Dates: start: 20071203
  3. ALLOPURINOL [Concomitant]
     Indication: DRUG USE FOR UNKNOWN INDICATION
  4. AMBIEN [Concomitant]
     Indication: DRUG USE FOR UNKNOWN INDICATION
  5. AMIODARONE HCL [Concomitant]
     Indication: DRUG USE FOR UNKNOWN INDICATION
  6. VITAMIN B-12 [Concomitant]
     Indication: DRUG USE FOR UNKNOWN INDICATION
  7. CALCITRIOL [Concomitant]
     Indication: DRUG USE FOR UNKNOWN INDICATION
  8. COREG [Concomitant]
     Indication: DRUG USE FOR UNKNOWN INDICATION
  9. COLCHICINE [Concomitant]
     Indication: GOUT
  10. NEURONTIN [Concomitant]
     Indication: RESTLESS LEGS SYNDROME
  11. ATARAX [Concomitant]
     Indication: PRURITUS
  12. SYNTHROID [Concomitant]
     Indication: THYROID DISORDER
  13. LISINOPRIL [Concomitant]
     Indication: DRUG USE FOR UNKNOWN INDICATION
  14. NEPHROCAPS [Concomitant]
     Indication: DRUG USE FOR UNKNOWN INDICATION
  15. PRILOSEC [Concomitant]
     Indication: DYSPEPSIA
  16. PHOSLO [Concomitant]
     Indication: DRUG USE FOR UNKNOWN INDICATION
  17. IRON [Concomitant]
     Indication: MINERAL SUPPLEMENTATION
  18. ZOCOR [Concomitant]
     Indication: DRUG USE FOR UNKNOWN INDICATION
  19. ASCORBIC ACID [Concomitant]
     Indication: VITAMIN SUPPLEMENTATION
  20. ZOLOFT [Concomitant]
     Indication: DEPRESSION

REACTIONS (1)
  - FALL [None]
